FAERS Safety Report 8557464-1 (Version None)
Quarter: 2012Q3

REPORT INFORMATION
  Report Type: 
  Country: None (occurrence: None)
  Receive Date: 20120725
  Receipt Date: 20120725
  Transmission Date: 20120928
  Serious: Yes (Hospitalization)
  Sender: FDA-Public Use
  Company Number: None

PATIENT
  Age: 42 Year
  Sex: Female
  Weight: 65.7716 kg

DRUGS (1)
  1. MAXZIDE [Suspect]
     Indication: FLUID RETENTION
     Dosage: 1 DAILY, PO
     Route: 048
     Dates: start: 20120709, end: 20120712

REACTIONS (7)
  - PRODUCT SUBSTITUTION ISSUE [None]
  - COLD SWEAT [None]
  - HYPERTENSION [None]
  - DIZZINESS [None]
  - HYPOAESTHESIA [None]
  - NAUSEA [None]
  - CHEST PAIN [None]
